FAERS Safety Report 6175795-X (Version None)
Quarter: 2009Q2

REPORT INFORMATION
  Report Type: 
  Country: None (occurrence: None)
  Receive Date: 20090501
  Receipt Date: 20090428
  Transmission Date: 20091009
  Serious: Yes (Other)
  Sender: FDA-Public Use
  Company Number: US-ASTRAZENECA-2009UW07681

PATIENT
  Age: 10246 Day
  Sex: Female
  Weight: 52.2 kg

DRUGS (3)
  1. SEROQUEL [Suspect]
     Indication: BIPOLAR I DISORDER
     Route: 048
  2. TRAZODONE HCL [Concomitant]
     Indication: SLEEP DISORDER
     Route: 048
     Dates: start: 20080401
  3. XANAX [Concomitant]
     Indication: ANXIETY
     Dosage: 0.5 MG
     Route: 048
     Dates: start: 20080308

REACTIONS (3)
  - AKATHISIA [None]
  - TARDIVE DYSKINESIA [None]
  - TOURETTE'S DISORDER [None]
